FAERS Safety Report 7853373-1 (Version None)
Quarter: 2011Q4

REPORT INFORMATION
  Report Type: 
  Country: None (occurrence: None)
  Receive Date: 20111026
  Receipt Date: 20111017
  Transmission Date: 20120403
  Serious: Yes (Disabling, Other)
  Sender: FDA-Public Use
  Company Number: JP-ASTRAZENECA-2010SE44595

PATIENT
  Age: 37 Year
  Sex: Female
  Weight: 62 kg

DRUGS (4)
  1. MARCAINE [Suspect]
     Indication: ANAESTHESIA
     Route: 037
     Dates: start: 20100914
  2. XYLOCAINE [Suspect]
     Route: 065
     Dates: start: 20100914, end: 20100914
  3. FENTANYL [Concomitant]
     Indication: POSTOPERATIVE ANALGESIA
     Dosage: 10 ML, FENTANYL 10 ML + 0.2 % ANAPEINE 200 ML: 4 ML/HR AND BOLUS 3 ML EVERY 30 MIN
     Route: 008
     Dates: start: 20100914, end: 20100916
  4. ROPIVACAINE HYDROCHLORIDE [Suspect]
     Indication: POSTOPERATIVE ANALGESIA
     Dosage: 200 ML, FENTANYL 10 ML + 0.2 % ANAPEINE 200 ML: 4 ML/HR AND BOLUS 3 ML EVERY 30 MIN
     Route: 008
     Dates: start: 20100914, end: 20100916

REACTIONS (2)
  - NERVOUS SYSTEM DISORDER [None]
  - DIPLEGIA [None]
